FAERS Safety Report 12680136 (Version 1)
Quarter: 2016Q3

REPORT INFORMATION
  Report Type: Spontaneous
  Country: US (occurrence: None)
  Receive Date: 20160823
  Receipt Date: 20160823
  Transmission Date: 20161109
  Serious: Yes (Hospitalization)
  Sender: FDA-Public Use
  Company Number: None

PATIENT
  Age: 92 Year
  Sex: Male
  Weight: 65.3 kg

DRUGS (1)
  1. ENOXAPARIN [Suspect]
     Active Substance: ENOXAPARIN
     Indication: CEREBROVASCULAR ACCIDENT
     Route: 058
     Dates: start: 20160504, end: 20160505

REACTIONS (10)
  - Haemoglobin decreased [None]
  - Hypotension [None]
  - Atrial fibrillation [None]
  - Haematocrit decreased [None]
  - Gastric haemorrhage [None]
  - Asthenia [None]
  - Gait disturbance [None]
  - Dyspnoea [None]
  - Cerebrovascular accident [None]
  - Fatigue [None]

NARRATIVE: CASE EVENT DATE: 20160505
